FAERS Safety Report 6877146-1 (Version None)
Quarter: 2010Q3

REPORT INFORMATION
  Report Type: 
  Country: None (occurrence: None)
  Receive Date: 20100727
  Receipt Date: 20100727
  Transmission Date: 20110219
  Serious: Yes (Other)
  Sender: FDA-Public Use
  Company Number: None

PATIENT
  Sex: Female
  Weight: 57.1532 kg

DRUGS (2)
  1. VAGIFEM [Suspect]
     Indication: URINARY TRACT INFECTION
     Dosage: 1 TAB TWICE WEEKLY VAG
     Route: 067
     Dates: start: 20090415, end: 20091018
  2. VAGIFEM [Suspect]
     Dosage: 1 TAB ONCE WEEKLY VAG
     Route: 067
     Dates: start: 20091020, end: 20091118

REACTIONS (1)
  - ENDOMETRIAL CANCER [None]
